FAERS Safety Report 4721807-7 (Version None)
Quarter: 2005Q3

REPORT INFORMATION
  Report Type: 
  Country: None (occurrence: None)
  Receive Date: 20050721
  Receipt Date: 20050422
  Transmission Date: 20060218
  Serious: Yes (Hospitalization)
  Sender: FDA-Public Use
  Company Number: US-BRISTOL-MYERS SQUIBB COMPANY-12943213

PATIENT
  Age: 64 Year
  Sex: Male
  Weight: 103 kg

DRUGS (6)
  1. COUMADIN [Suspect]
     Indication: THROMBOSIS
     Dosage: DOSE VARIED, INTERMITTENTLY DISCONTINUED,10MG AT TIME OF REPORTING
     Route: 048
  2. AVALIDE [Concomitant]
  3. ELAVIL [Concomitant]
  4. GLUCOPHAGE [Concomitant]
  5. HUMULIN [Concomitant]
     Dosage: HUMULIN 70/40: 16 UNITS IN THE AM + 12 UNITS IN PM
  6. PROTONIX [Concomitant]

REACTIONS (2)
  - PULMONARY EMBOLISM [None]
  - THROMBOSIS [None]
